FAERS Safety Report 11997957 (Version 1)
Quarter: 2016Q1

REPORT INFORMATION
  Report Type: Spontaneous
  Country: US (occurrence: None)
  Receive Date: 20160202
  Receipt Date: 20160202
  Transmission Date: 20160526
  Serious: No
  Sender: FDA-Public Use
  Company Number: None

PATIENT
  Age: 72 Year
  Sex: Male

DRUGS (7)
  1. CHLORTHALID [Concomitant]
  2. MAG [Concomitant]
  3. ESOMEPRA [Concomitant]
     Active Substance: ESOMEPRAZOLE
  4. CAF [Concomitant]
  5. EXJADE [Suspect]
     Active Substance: DEFERASIROX
     Indication: HAEMOCHROMATOSIS
     Route: 048
     Dates: start: 201510, end: 201512
  6. BUDESONIDE. [Concomitant]
     Active Substance: BUDESONIDE
  7. JADENU [Concomitant]
     Active Substance: DEFERASIROX

REACTIONS (1)
  - Renal impairment [None]

NARRATIVE: CASE EVENT DATE: 201512
